FAERS Safety Report 8496535-5 (Version None)
Quarter: 2012Q3

REPORT INFORMATION
  Report Type: 
  Country: None (occurrence: None)
  Receive Date: 20120709
  Receipt Date: 20120629
  Transmission Date: 20120928
  Serious: Yes (Hospitalization)
  Sender: FDA-Public Use
  Company Number: US-ELI_LILLY_AND_COMPANY-US201207000189

PATIENT
  Age: 59 Year
  Sex: Female

DRUGS (1)
  1. GLUCAGON [Suspect]
     Indication: HYPOGLYCAEMIA
     Dosage: UNK, PRN
     Route: 065

REACTIONS (3)
  - EMOTIONAL DISORDER [None]
  - BLOOD GLUCOSE DECREASED [None]
  - BLOOD GLUCOSE ABNORMAL [None]
